FAERS Safety Report 25331982 (Version 1)
Quarter: 2025Q2

REPORT INFORMATION
  Report Type: Spontaneous
  Country: US (occurrence: US)
  Receive Date: 20250519
  Receipt Date: 20250519
  Transmission Date: 20250717
  Serious: Yes (Death, Other)
  Sender: AMGEN
  Company Number: US-AMGEN-USASP2025096111

PATIENT

DRUGS (1)
  1. PREDNISONE [Suspect]
     Active Substance: PREDNISONE
     Indication: Chronic obstructive pulmonary disease
     Route: 065

REACTIONS (10)
  - Death [Fatal]
  - Pneumonia [Unknown]
  - Acute respiratory distress syndrome [Unknown]
  - Dependence on oxygen therapy [Unknown]
  - Impaired gastric emptying [Unknown]
  - Pancreatitis [Unknown]
  - Intestinal obstruction [Unknown]
  - Chronic obstructive pulmonary disease [Unknown]
  - Biliary tract disorder [Unknown]
  - Endotracheal intubation [Unknown]
